FAERS Safety Report 5313482-8 (Version None)
Quarter: 2007Q2

REPORT INFORMATION
  Report Type: 
  Country: None (occurrence: None)
  Receive Date: 20070424
  Receipt Date: 20070413
  Transmission Date: 20071010
  Serious: Yes (Hospitalization)
  Sender: FDA-Public Use
  Company Number: 2007-01098

PATIENT
  Age: 77 Year
  Sex: Female
  Weight: 63 kg

DRUGS (4)
  1. VELCADE [Suspect]
     Indication: MULTIPLE MYELOMA
     Dosage: 2.00 MG, INTRAVENOUS
     Route: 042
     Dates: start: 20070330, end: 20070402
  2. THALIDOMIDE [Suspect]
     Indication: MULTIPLE MYELOMA
     Dosage: 50.00 MG, ORAL
     Route: 048
     Dates: start: 20070330, end: 20070403
  3. MELPHALAN(MELPHALAN) VIAL [Suspect]
     Indication: MULTIPLE MYELOMA
     Dosage: 12.00 MG, ORAL
     Route: 048
     Dates: start: 20070330, end: 20070402
  4. PREDNISONE [Suspect]
     Indication: MULTIPLE MYELOMA

REACTIONS (1)
  - ATRIAL FIBRILLATION [None]
